FAERS Safety Report 18658720 (Version 1)
Quarter: 2020Q4

REPORT INFORMATION
  Report Type: Spontaneous
  Country: US (occurrence: US)
  Receive Date: 20201223
  Receipt Date: 20201223
  Transmission Date: 20210114
  Serious: Yes (Other)
  Sender: FDA-Public Use
  Company Number: US-BAYER-2020-280025

PATIENT
  Sex: Female

DRUGS (2)
  1. KYLEENA [Suspect]
     Active Substance: LEVONORGESTREL
     Indication: MENORRHAGIA
  2. KYLEENA [Suspect]
     Active Substance: LEVONORGESTREL
     Indication: CONTRACEPTION
     Dosage: 17,5 ?G PER DAY CONTINUOUSLY
     Route: 015
     Dates: start: 20200615

REACTIONS (7)
  - Vaginal discharge [Not Recovered/Not Resolved]
  - Muscle spasms [Not Recovered/Not Resolved]
  - Mood altered [Not Recovered/Not Resolved]
  - Menorrhagia [Recovering/Resolving]
  - Genital haemorrhage [Recovering/Resolving]
  - Dysmenorrhoea [Not Recovered/Not Resolved]
  - Depression [Not Recovered/Not Resolved]
